FAERS Safety Report 5237564-4 (Version None)
Quarter: 2007Q1

REPORT INFORMATION
  Report Type: 
  Country: None (occurrence: None)
  Receive Date: 20070213
  Receipt Date: 20070202
  Transmission Date: 20070707
  Serious: Yes (Other)
  Sender: FDA-Public Use
  Company Number: US-PFIZER INC-2007009164

PATIENT
  Sex: Female
  Weight: 54.9 kg

DRUGS (2)
  1. LYRICA [Suspect]
     Indication: TRANSIENT ISCHAEMIC ATTACK
  2. ASPIRIN [Concomitant]

REACTIONS (5)
  - ARTHRALGIA [None]
  - BURNING SENSATION [None]
  - FEELING HOT [None]
  - HEADACHE [None]
  - MUSCLE TWITCHING [None]
